FAERS Safety Report 5454608-5 (Version None)
Quarter: 2007Q3

REPORT INFORMATION
  Report Type: 
  Country: None (occurrence: None)
  Receive Date: 20070917
  Receipt Date: 20070228
  Transmission Date: 20080115
  Serious: No
  Sender: FDA-Public Use
  Company Number: US-ASTRAZENECA-2006UW11558

PATIENT
  Sex: Female
  Weight: 83.2 kg

DRUGS (3)
  1. SEROQUEL [Suspect]
     Indication: BIPOLAR DISORDER
     Route: 048
     Dates: start: 20040101, end: 20050101
  2. ZYPREXA [Suspect]
  3. ABILIFY [Concomitant]

REACTIONS (3)
  - CHEST PAIN [None]
  - DIABETES MELLITUS [None]
  - STOMACH DISCOMFORT [None]
